FAERS Safety Report 4997542-7 (Version None)
Quarter: 2006Q2

REPORT INFORMATION
  Report Type: 
  Country: None (occurrence: None)
  Receive Date: 20060509
  Receipt Date: 20060313
  Transmission Date: 20061013
  Serious: Yes (Hospitalization, Other)
  Sender: FDA-Public Use
  Company Number: US-MERCK-0603USA02206

PATIENT
  Age: 46 Year
  Sex: Male
  Weight: 80 kg

DRUGS (9)
  1. VIOXX [Suspect]
     Indication: ARTHRITIS
     Route: 048
     Dates: start: 19991001, end: 20000201
  2. VIOXX [Suspect]
     Route: 048
     Dates: start: 20000201, end: 20000401
  3. PAXIL [Concomitant]
     Route: 065
  4. FLEXERIL [Concomitant]
     Route: 065
  5. LORTAB [Concomitant]
     Route: 065
  6. PROPULSID [Concomitant]
     Route: 065
  7. PRILOSEC [Concomitant]
     Route: 065
  8. DYAZIDE [Concomitant]
     Route: 065
  9. CARDIZEM CD [Concomitant]
     Route: 065

REACTIONS (21)
  - ANGINA PECTORIS [None]
  - ARTERIOSCLEROSIS CORONARY ARTERY [None]
  - ARTERIOSPASM CORONARY [None]
  - CARDIOVASCULAR DISORDER [None]
  - CHEST PAIN [None]
  - CORONARY ARTERY DISEASE [None]
  - DEPRESSION [None]
  - DERMATITIS ALLERGIC [None]
  - DIABETES MELLITUS [None]
  - GASTROOESOPHAGEAL REFLUX DISEASE [None]
  - HEPATIC STEATOSIS [None]
  - HERNIA [None]
  - HYPERCHOLESTEROLAEMIA [None]
  - HYPERTENSION [None]
  - INSOMNIA [None]
  - MAJOR DEPRESSION [None]
  - MUSCULAR WEAKNESS [None]
  - MYOCARDIAL INFARCTION [None]
  - SINUS TACHYCARDIA [None]
  - SMALL INTESTINAL OBSTRUCTION [None]
  - STEVENS-JOHNSON SYNDROME [None]
